FAERS Safety Report 11590328 (Version 1)
Quarter: 2015Q4

REPORT INFORMATION
  Report Type: Spontaneous
  Country: US (occurrence: US)
  Receive Date: 20151002
  Receipt Date: 20151002
  Transmission Date: 20160304
  Serious: Yes (Other)
  Sender: FDA-Public Use
  Company Number: US-BAYER-2015-432664

PATIENT
  Age: 3 Year
  Sex: Male
  Weight: 13.7 kg

DRUGS (4)
  1. KOGENATE FS [Suspect]
     Active Substance: ANTIHEMOPHILIC FACTOR, HUMAN RECOMBINANT
     Indication: FACTOR VIII DEFICIENCY
     Dosage: 500 U, MONDAY/WEDNESDAY/FRIDAY AND PRN BLEEDING
     Route: 042
     Dates: start: 20140819
  2. HEPARIN [Concomitant]
     Active Substance: HEPARIN SODIUM
     Dosage: 3-5 ML
  3. LMX [Concomitant]
     Active Substance: LIDOCAINE
  4. NACL [Concomitant]
     Active Substance: SODIUM CHLORIDE

REACTIONS (4)
  - Pyrexia [Recovered/Resolved]
  - Viral infection [Recovered/Resolved]
  - Nausea [Recovered/Resolved]
  - Vomiting [Recovered/Resolved]

NARRATIVE: CASE EVENT DATE: 20150925
